FAERS Safety Report 25800372 (Version 5)
Quarter: 2025Q4

REPORT INFORMATION
  Report Type: Report from Study
  Country: US (occurrence: US)
  Receive Date: 20250915
  Receipt Date: 20251212
  Transmission Date: 20260118
  Serious: Yes (Other)
  Sender: DECIPHERA PHARMACEUTICALS
  Company Number: US-DECIPHERA PHARMACEUTICALS LLC-2025US001119

PATIENT
  Age: 81 Year
  Sex: Female

DRUGS (2)
  1. ROMVIMZA [Suspect]
     Active Substance: VIMSELTINIB
     Indication: Giant cell tumour of tendon sheath
     Dosage: 30 MILLIGRAM, TWICE WEEKLY, 72 HOURS
     Dates: start: 20250506, end: 20250909
  2. ROMVIMZA [Suspect]
     Active Substance: VIMSELTINIB
     Dosage: 30 MILLIGRAM, TWICE WEEKLY, 72 HOURS
     Dates: start: 20250916

REACTIONS (2)
  - Iridocyclitis [Recovered/Resolved]
  - Dry eye [Unknown]

NARRATIVE: CASE EVENT DATE: 20250101
